FAERS Safety Report 17244360 (Version 4)
Quarter: 2020Q3

REPORT INFORMATION
  Report Type: Spontaneous
  Country: US (occurrence: US)
  Receive Date: 20200107
  Receipt Date: 20200819
  Transmission Date: 20201102
  Serious: No
  Sender: FDA-Public Use
  Company Number: US-GILEAD-2019-0444920

PATIENT
  Age: 51 Year
  Sex: Male
  Weight: 88.45 kg

DRUGS (12)
  1. NAPROXIN [NAPROXEN] [Concomitant]
  2. TRUVADA [Suspect]
     Active Substance: EMTRICITABINE\TENOFOVIR DISOPROXIL FUMARATE
     Indication: HIV INFECTION
     Dosage: UNK
     Route: 048
     Dates: start: 20110207, end: 20150127
  3. GENVOYA [Concomitant]
     Active Substance: COBICISTAT\ELVITEGRAVIR\EMTRICITABINE\TENOFOVIR ALAFENAMIDE FUMARATE
  4. NORVIR [Concomitant]
     Active Substance: RITONAVIR
  5. AZITHROMYCIN ANHYDROUS. [Concomitant]
     Active Substance: AZITHROMYCIN ANHYDROUS
  6. REYATAZ [Concomitant]
     Active Substance: ATAZANAVIR SULFATE
  7. IBUPROFEN. [Concomitant]
     Active Substance: IBUPROFEN
  8. ASPIRIN [ACETYLSALICYLIC ACID] [Concomitant]
     Active Substance: ASPIRIN
  9. TRUVADA [Suspect]
     Active Substance: EMTRICITABINE\TENOFOVIR DISOPROXIL FUMARATE
     Dosage: UNK
     Route: 048
     Dates: start: 20110207, end: 2017
  10. ACETAMINOPHEN. [Concomitant]
     Active Substance: ACETAMINOPHEN
  11. AMOXICILLIN. [Concomitant]
     Active Substance: AMOXICILLIN
  12. LEVITRA [Concomitant]
     Active Substance: VARDENAFIL HYDROCHLORIDE

REACTIONS (7)
  - Anhedonia [Unknown]
  - Pain [Unknown]
  - Emotional distress [Unknown]
  - Bone density decreased [Unknown]
  - Anxiety [Unknown]
  - Osteopenia [Not Recovered/Not Resolved]
  - Economic problem [Unknown]

NARRATIVE: CASE EVENT DATE: 2017
